FAERS Safety Report 24417741 (Version 1)
Quarter: 2024Q4

REPORT INFORMATION
  Report Type: Report from Study
  Country: JP (occurrence: JP)
  Receive Date: 20241009
  Receipt Date: 20241009
  Transmission Date: 20250115
  Serious: Yes (Hospitalization, Other)
  Sender: ALEXION PHARMACEUTICALS
  Company Number: JP-ALXN-202402JPN000072JP

PATIENT
  Age: 41 Year
  Weight: 55.2 kg

DRUGS (24)
  1. ULTOMIRIS [Suspect]
     Active Substance: RAVULIZUMAB-CWVZ
     Indication: Myasthenia gravis
     Dosage: 2400 MILLIGRAM
     Route: 065
  2. ULTOMIRIS [Suspect]
     Active Substance: RAVULIZUMAB-CWVZ
     Dosage: 2400 MILLIGRAM
  3. ULTOMIRIS [Suspect]
     Active Substance: RAVULIZUMAB-CWVZ
     Dosage: 2400 MILLIGRAM
     Route: 065
  4. ULTOMIRIS [Suspect]
     Active Substance: RAVULIZUMAB-CWVZ
     Dosage: 2400 MILLIGRAM
  5. ULTOMIRIS [Suspect]
     Active Substance: RAVULIZUMAB-CWVZ
     Dosage: 3000 MILLIGRAM
     Route: 065
  6. ULTOMIRIS [Suspect]
     Active Substance: RAVULIZUMAB-CWVZ
     Dosage: 3000 MILLIGRAM
  7. ULTOMIRIS [Suspect]
     Active Substance: RAVULIZUMAB-CWVZ
     Dosage: 3000 MILLIGRAM
     Route: 065
  8. ULTOMIRIS [Suspect]
     Active Substance: RAVULIZUMAB-CWVZ
     Dosage: 3000 MILLIGRAM
  9. MESTINON [Concomitant]
     Active Substance: PYRIDOSTIGMINE BROMIDE
     Indication: Myasthenia gravis
     Dosage: 3 DOSAGE FORM
  10. MESTINON [Concomitant]
     Active Substance: PYRIDOSTIGMINE BROMIDE
     Dosage: 3 DOSAGE FORM
  11. MESTINON [Concomitant]
     Active Substance: PYRIDOSTIGMINE BROMIDE
     Dosage: 3 DOSAGE FORM
  12. MESTINON [Concomitant]
     Active Substance: PYRIDOSTIGMINE BROMIDE
     Dosage: 3 DOSAGE FORM
  13. PROGRAF [Concomitant]
     Active Substance: TACROLIMUS
     Indication: Myasthenia gravis
     Dosage: 3 DOSAGE FORM
  14. PROGRAF [Concomitant]
     Active Substance: TACROLIMUS
     Dosage: 3 DOSAGE FORM
  15. PROGRAF [Concomitant]
     Active Substance: TACROLIMUS
     Dosage: 3 DOSAGE FORM
  16. PROGRAF [Concomitant]
     Active Substance: TACROLIMUS
     Dosage: 3 DOSAGE FORM
  17. PREDONINE [Concomitant]
     Active Substance: PREDNISOLONE
     Indication: Myasthenia gravis
     Dosage: 1 DOSAGE FORM
  18. PREDONINE [Concomitant]
     Active Substance: PREDNISOLONE
     Dosage: 1 DOSAGE FORM
  19. PREDONINE [Concomitant]
     Active Substance: PREDNISOLONE
     Dosage: 1 DOSAGE FORM
  20. PREDONINE [Concomitant]
     Active Substance: PREDNISOLONE
     Dosage: 1 DOSAGE FORM
  21. PREDNISOLONE [Concomitant]
     Active Substance: PREDNISOLONE
     Indication: Myasthenia gravis
     Dosage: 4 MILLIGRAM (4 TABLETS OF 1MG)
  22. PREDNISOLONE [Concomitant]
     Active Substance: PREDNISOLONE
     Dosage: 4 MILLIGRAM (4 TABLETS OF 1MG)
  23. PREDNISOLONE [Concomitant]
     Active Substance: PREDNISOLONE
     Dosage: 4 MILLIGRAM (4 TABLETS OF 1MG)
  24. PREDNISOLONE [Concomitant]
     Active Substance: PREDNISOLONE
     Dosage: 4 MILLIGRAM (4 TABLETS OF 1MG)

REACTIONS (1)
  - Myasthenia gravis [Recovering/Resolving]
